FAERS Safety Report 10023028 (Version 3)
Quarter: 2015Q2

REPORT INFORMATION
  Report Type: Spontaneous
  Country: US (occurrence: US)
  Receive Date: 20140319
  Receipt Date: 20150629
  Transmission Date: 20150821
  Serious: Yes (Hospitalization, Disabling, Other)
  Sender: FDA-Public Use
  Company Number: US-SA-2014SA032290

PATIENT
  Age: 57 Year
  Sex: Female

DRUGS (1)
  1. PLAVIX [Suspect]
     Active Substance: CLOPIDOGREL BISULFATE
     Indication: ACUTE CORONARY SYNDROME
     Route: 048
     Dates: start: 2005, end: 20060509

REACTIONS (11)
  - Multiple injuries [Not Recovered/Not Resolved]
  - Cerebrovascular accident [Unknown]
  - Physical disability [Not Recovered/Not Resolved]
  - Pain [Not Recovered/Not Resolved]
  - Anhedonia [Not Recovered/Not Resolved]
  - Tension [Not Recovered/Not Resolved]
  - Loss of employment [Not Recovered/Not Resolved]
  - Psychological trauma [Not Recovered/Not Resolved]
  - Social problem [Not Recovered/Not Resolved]
  - Economic problem [Not Recovered/Not Resolved]
  - Thrombotic thrombocytopenic purpura [Unknown]

NARRATIVE: CASE EVENT DATE: 20060509
